FAERS Safety Report 17214739 (Version 1)
Quarter: 2020Q1

REPORT INFORMATION
  Report Type: Spontaneous
  Country: US (occurrence: US)
  Receive Date: 20191229
  Receipt Date: 20191229
  Transmission Date: 20200409
  Serious: Yes (Death)
  Sender: FDA-Public Use
  Company Number: None

PATIENT
  Age: 75 Year
  Sex: Female
  Weight: 95 kg

DRUGS (5)
  1. CARBOPLATIN. [Suspect]
     Active Substance: CARBOPLATIN
     Indication: OVARIAN CANCER
  2. ALIMTA [Concomitant]
     Active Substance: PEMETREXED DISODIUM
     Dates: start: 20191002, end: 20191023
  3. EMEND [Concomitant]
     Active Substance: APREPITANT
     Dates: start: 20191002, end: 20191023
  4. ALOXI [Concomitant]
     Active Substance: PALONOSETRON HYDROCHLORIDE
     Dates: start: 20191002, end: 20191023
  5. DECADRON [Concomitant]
     Active Substance: DEXAMETHASONE
     Dates: start: 20191002, end: 20191023

REACTIONS (3)
  - Ventricular tachycardia [None]
  - Infusion related reaction [None]
  - Respiratory disorder [None]

NARRATIVE: CASE EVENT DATE: 20191023
